FAERS Safety Report 9407246 (Version 1)
Quarter: 2013Q3

REPORT INFORMATION
  Report Type: Spontaneous
  Country: US (occurrence: US)
  Receive Date: 20130718
  Receipt Date: 20130718
  Transmission Date: 20140515
  Serious: No
  Sender: FDA-Public Use
  Company Number: US-009507513-1307USA007545

PATIENT
  Sex: Female

DRUGS (2)
  1. SAPHRIS [Suspect]
     Route: 048
  2. XANAX [Concomitant]

REACTIONS (9)
  - Dehydration [Unknown]
  - Insomnia [Unknown]
  - Pollakiuria [Unknown]
  - Hyperhidrosis [Unknown]
  - Nausea [Unknown]
  - Crying [Unknown]
  - Agitation [Unknown]
  - Negative thoughts [Unknown]
  - Agoraphobia [Unknown]
